FAERS Safety Report 11074322 (Version 1)
Quarter: 2015Q2

REPORT INFORMATION
  Report Type: Spontaneous
  Country: US (occurrence: None)
  Receive Date: 20150428
  Receipt Date: 20150428
  Transmission Date: 20150821
  Serious: Yes (Hospitalization)
  Sender: FDA-Public Use
  Company Number: None

PATIENT
  Age: 2 Month
  Sex: Male

DRUGS (2)
  1. MIRALAX [Suspect]
     Active Substance: POLYETHYLENE GLYCOL 3350
     Indication: CONSTIPATION
     Dosage: 2 TABLE SPOONS  TAKEN BY MOUTH
     Route: 048
     Dates: start: 20121101, end: 20121116
  2. MIRALAX [Suspect]
     Active Substance: POLYETHYLENE GLYCOL 3350
     Indication: PAIN
     Dosage: 2 TABLE SPOONS  TAKEN BY MOUTH
     Route: 048
     Dates: start: 20121101, end: 20121116

REACTIONS (2)
  - Dehydration [None]
  - Feeding disorder of infancy or early childhood [None]

NARRATIVE: CASE EVENT DATE: 20121116
